FAERS Safety Report 13579555 (Version 1)
Quarter: 2017Q2

REPORT INFORMATION
  Report Type: Spontaneous
  Country: TR (occurrence: TR)
  Receive Date: 20170525
  Receipt Date: 20170525
  Transmission Date: 20170830
  Serious: Yes (Death)
  Sender: FDA-Public Use
  Company Number: TR-ASTRAZENECA-2017SE53519

PATIENT
  Age: 65 Year
  Sex: Female

DRUGS (1)
  1. FASLODEX [Suspect]
     Active Substance: FULVESTRANT
     Indication: BREAST CANCER METASTATIC
     Dosage: UNKNOWN DOSE
     Route: 030

REACTIONS (2)
  - Electrolyte imbalance [Fatal]
  - Arthralgia [Fatal]
